FAERS Safety Report 25645044 (Version 2)
Quarter: 2025Q3

REPORT INFORMATION
  Report Type: Spontaneous
  Country: EU (occurrence: EU)
  Receive Date: 20250805
  Receipt Date: 20250903
  Transmission Date: 20251021
  Serious: Yes (Hospitalization, Other)
  Sender: MACLEODS
  Company Number: EU-MACLEODS PHARMA-MAC2025054443

PATIENT

DRUGS (3)
  1. METFORMIN HYDROCHLORIDE [Suspect]
     Active Substance: METFORMIN HYDROCHLORIDE
     Indication: Type 2 diabetes mellitus
     Dosage: 850 MG HALF A TABLET IN THE MORNING AND EVENING; RECEIVING SYSTEMIC THERAPY SINCE 2001 (23 YEARS)
     Route: 065
     Dates: start: 2001
  2. AMLODIPINE\HYDROCHLOROTHIAZIDE\VALSARTAN [Suspect]
     Active Substance: AMLODIPINE\HYDROCHLOROTHIAZIDE\VALSARTAN
     Indication: Hypertension
     Dosage: 5/160/12.5 MG ONCE  IN THE EVENING SINCE 2022 (PRIOR TO THE CONSULTATION IN 2024)
     Route: 065
     Dates: start: 2022
  3. BISOPROLOL [Suspect]
     Active Substance: BISOPROLOL
     Indication: Hypertension
     Dosage: 5 MG HALF A TABLET IN THE MORNING; RECEIVING SYSTEMIC THERAPY SINCE 2001 (23 YEARS)
     Route: 065
     Dates: start: 2001

REACTIONS (4)
  - Ear neoplasm malignant [Recovered/Resolved]
  - Neoplasm progression [Recovered/Resolved]
  - Basal cell carcinoma [Recovered/Resolved]
  - Product contamination [Unknown]
